FAERS Safety Report 23765312 (Version 1)
Quarter: 2024Q2

REPORT INFORMATION
  Report Type: Spontaneous
  Country: US (occurrence: US)
  Receive Date: 20240420
  Receipt Date: 20240420
  Transmission Date: 20240715
  Serious: Yes (Hospitalization)
  Sender: FDA-Public Use
  Company Number: US-ABBVIE-5726684

PATIENT
  Sex: Female

DRUGS (1)
  1. RECTIV [Suspect]
     Active Substance: NITROGLYCERIN
     Indication: Product used for unknown indication
     Dosage: 30G TUBE, STRENGTH: 0.4 PERCENT
     Route: 061

REACTIONS (3)
  - Vaginal discharge [Unknown]
  - Pain [Unknown]
  - Swelling [Unknown]
